FAERS Safety Report 10280304 (Version 2)
Quarter: 2014Q4

REPORT INFORMATION
  Report Type: Spontaneous
  Country: AT (occurrence: AT)
  Receive Date: 20140707
  Receipt Date: 20141215
  Transmission Date: 20150528
  Serious: Yes (Other)
  Sender: FDA-Public Use
  Company Number: AT-ELI_LILLY_AND_COMPANY-AT201406008279

PATIENT
  Age: 58 Year
  Sex: Female

DRUGS (27)
  1. LYRICA [Suspect]
     Active Substance: PREGABALIN
     Dosage: 250 MG, UNKNOWN
     Route: 065
     Dates: start: 20121008, end: 20121010
  2. LYRICA [Suspect]
     Active Substance: PREGABALIN
     Dosage: 325 MG, UNKNOWN
     Route: 065
     Dates: start: 20121011, end: 20121016
  3. TRITTICO [Concomitant]
     Active Substance: TRAZODONE HYDROCHLORIDE
     Dosage: UNK, OTHER: 150
     Dates: start: 20131126
  4. CIPRALEX [Concomitant]
     Active Substance: ESCITALOPRAM OXALATE
     Dosage: 10 MG, UNKNOWN
     Dates: start: 20140416
  5. SEROQUEL XR [Concomitant]
     Active Substance: QUETIAPINE FUMARATE
     Dosage: UNK UNK, OTHER: 100
     Dates: start: 20131103, end: 20131103
  6. SEROQUEL XR [Concomitant]
     Active Substance: QUETIAPINE FUMARATE
     Dosage: UNK, OTHER: 200
     Dates: start: 20131104, end: 20131122
  7. LYRICA [Suspect]
     Active Substance: PREGABALIN
     Dosage: 150 MG, UNKNOWN
     Route: 065
     Dates: start: 20131107, end: 20131111
  8. ASPIRIN. [Concomitant]
     Active Substance: ASPIRIN
     Dosage: 40 MG, UNKNOWN
     Dates: start: 20140130, end: 20140209
  9. LYRICA [Suspect]
     Active Substance: PREGABALIN
     Dosage: 75 MG, UNKNOWN
     Route: 065
     Dates: start: 20120918, end: 20120919
  10. LYRICA [Suspect]
     Active Substance: PREGABALIN
     Dosage: 200 MG, UNKNOWN
     Route: 065
     Dates: start: 20121001, end: 20121007
  11. LYRICA [Suspect]
     Active Substance: PREGABALIN
     Dosage: 225 MG, UNKNOWN
     Route: 065
     Dates: start: 20131112, end: 20140114
  12. LYRICA [Suspect]
     Active Substance: PREGABALIN
     Dosage: 375 MG, UNKNOWN
     Route: 065
     Dates: start: 20121017, end: 20131103
  13. LYRICA [Suspect]
     Active Substance: PREGABALIN
     Dosage: 225 MG, UNKNOWN
     Route: 065
     Dates: start: 20131104, end: 20131106
  14. LYRICA [Suspect]
     Active Substance: PREGABALIN
     Dosage: 300 MG, UNKNOWN
     Route: 065
     Dates: start: 20140115, end: 20140115
  15. ZELDOX [Concomitant]
     Active Substance: ZIPRASIDONE
     Dosage: UNK, OTHER: 40
     Dates: start: 20131122, end: 20140114
  16. ASPIRIN. [Concomitant]
     Active Substance: ASPIRIN
     Dosage: 80 MG, UNKNOWN
     Dates: start: 20140115, end: 20140129
  17. LYRICA [Suspect]
     Active Substance: PREGABALIN
     Indication: PRODUCT USED FOR UNKNOWN INDICATION
     Dosage: 25 MG, UNKNOWN
     Route: 065
     Dates: start: 20110913, end: 20120917
  18. LYRICA [Suspect]
     Active Substance: PREGABALIN
     Dosage: 100 MG, UNKNOWN
     Route: 065
     Dates: start: 20120920, end: 20120925
  19. LYRICA [Suspect]
     Active Substance: PREGABALIN
     Dosage: 150 MG, UNKNOWN
     Route: 065
     Dates: start: 20120926, end: 20120930
  20. ZELDOX [Concomitant]
     Active Substance: ZIPRASIDONE
     Dosage: UNK, OTHER: 100
     Dates: start: 20140331
  21. LYRICA [Suspect]
     Active Substance: PREGABALIN
     Dosage: 375 MG, UNKNOWN
     Route: 065
     Dates: start: 20130116, end: 20130119
  22. TRITTICO [Concomitant]
     Active Substance: TRAZODONE HYDROCHLORIDE
     Dosage: UNK, OTHER: 100
     Dates: start: 20131125, end: 20131125
  23. ZELDOX [Concomitant]
     Active Substance: ZIPRASIDONE
     Dosage: UNK, OTHER: 60
     Dates: start: 20140115, end: 20140330
  24. DULOXETINE HYDROCHLORIDE. [Suspect]
     Active Substance: DULOXETINE HYDROCHLORIDE
     Indication: PRODUCT USED FOR UNKNOWN INDICATION
     Dosage: 120 MG, UNKNOWN
     Route: 065
     Dates: start: 201310
  25. LYRICA [Suspect]
     Active Substance: PREGABALIN
     Dosage: 600 MG, UNKNOWN
     Route: 065
     Dates: start: 20140120, end: 20140330
  26. LYRICA [Suspect]
     Active Substance: PREGABALIN
     Dosage: 450 MG, UNKNOWN
     Route: 065
     Dates: start: 20140331
  27. TRITTICO [Concomitant]
     Active Substance: TRAZODONE HYDROCHLORIDE
     Dosage: UNK, OTHER: 50
     Dates: start: 20131103, end: 20131124

REACTIONS (6)
  - Weight increased [Not Recovered/Not Resolved]
  - Neutrophil count decreased [Recovered/Resolved]
  - Blood glucose increased [Unknown]
  - Blood cholesterol increased [Unknown]
  - Blood glucose decreased [Recovered/Resolved]
  - White blood cell count increased [Unknown]

NARRATIVE: CASE EVENT DATE: 20131104
